FAERS Safety Report 10077233 (Version 2)
Quarter: 2014Q2

REPORT INFORMATION
  Report Type: Spontaneous
  Country: None (occurrence: US)
  Receive Date: 20140414
  Receipt Date: 20140414
  Transmission Date: 20141212
  Serious: No
  Sender: FDA-Public Use
  Company Number: US-BANPHARM-20131052

PATIENT
  Sex: Female

DRUGS (1)
  1. ALEVE LIQUID GELS 220MG [Suspect]
     Indication: ANALGESIC THERAPY
     Dosage: 1 DF,
     Route: 048

REACTIONS (1)
  - Somnolence [Unknown]
